FAERS Safety Report 16439493 (Version 2)
Quarter: 2019Q2

REPORT INFORMATION
  Report Type: Spontaneous
  Country: US (occurrence: US)
  Receive Date: 20190617
  Receipt Date: 20190624
  Transmission Date: 20190711
  Serious: No
  Sender: FDA-Public Use
  Company Number: US-PFIZER INC-2019249580

PATIENT
  Age: 78 Year
  Sex: Female
  Weight: 86 kg

DRUGS (1)
  1. LIDOCAINE HCL [Suspect]
     Active Substance: LIDOCAINE HYDROCHLORIDE
     Dosage: UNK

REACTIONS (3)
  - Hypersensitivity [Unknown]
  - Dyspnoea [Unknown]
  - Vomiting [Unknown]
